FAERS Safety Report 8338732-5 (Version None)
Quarter: 2012Q2

REPORT INFORMATION
  Report Type: 
  Country: None (occurrence: None)
  Receive Date: 20120504
  Receipt Date: 20120409
  Transmission Date: 20120825
  Serious: Yes (Other)
  Sender: FDA-Public Use
  Company Number: CHPA2012US009756

PATIENT
  Age: 66 Year
  Sex: Female

DRUGS (3)
  1. CRESTOR [Suspect]
     Indication: BLOOD CHOLESTEROL INCREASED
     Dosage: UNK
     Dates: start: 20100101, end: 20110101
  2. PREVACID 24 HR [Suspect]
     Indication: CONGENITAL PANCREATIC ANOMALY
     Dosage: 15 MG, QID
     Route: 048
     Dates: start: 20090101
  3. ZANTAC [Suspect]
     Indication: CONGENITAL PANCREATIC ANOMALY
     Dosage: 150 MG, QID
     Dates: start: 20090101

REACTIONS (6)
  - BLOOD CHOLESTEROL INCREASED [None]
  - PAIN IN EXTREMITY [None]
  - OFF LABEL USE [None]
  - INCORRECT DRUG ADMINISTRATION DURATION [None]
  - OVERDOSE [None]
  - THERAPEUTIC RESPONSE UNEXPECTED [None]
